FAERS Safety Report 9423916 (Version 2)
Quarter: 2013Q3

REPORT INFORMATION
  Report Type: Spontaneous
  Country: US (occurrence: US)
  Receive Date: 20130729
  Receipt Date: 20130830
  Transmission Date: 20140515
  Serious: No
  Sender: FDA-Public Use
  Company Number: US-BIOGENIDEC-2013BI068968

PATIENT
  Age: 50 Year
  Sex: Female

DRUGS (2)
  1. AVONEX [Suspect]
     Indication: MULTIPLE SCLEROSIS
     Route: 030
     Dates: start: 20111017, end: 20130606
  2. AVONEX [Suspect]
     Indication: MULTIPLE SCLEROSIS
     Route: 030

REACTIONS (7)
  - Cognitive disorder [Unknown]
  - Abasia [Unknown]
  - Hypophagia [Unknown]
  - Stress [Not Recovered/Not Resolved]
  - Multiple sclerosis relapse [Unknown]
  - Asthenia [Not Recovered/Not Resolved]
  - Anxiety [Unknown]
